FAERS Safety Report 9854734 (Version 2)
Quarter: 2014Q1

REPORT INFORMATION
  Report Type: Spontaneous
  Country: IT (occurrence: IT)
  Receive Date: 20140130
  Receipt Date: 20140213
  Transmission Date: 20141002
  Serious: Yes (Hospitalization)
  Sender: FDA-Public Use
  Company Number: IT-RANBAXY-2014RR-77532

PATIENT
  Age: 12 Month
  Sex: Female

DRUGS (1)
  1. AMOXICILLIN/CLAVULANIC ACID [Suspect]
     Indication: NASOPHARYNGITIS
     Dosage: UNK
     Route: 065
     Dates: start: 20131118, end: 20131125

REACTIONS (2)
  - Oedema peripheral [Unknown]
  - Urticaria [Unknown]
